FAERS Safety Report 6064905-0 (Version None)
Quarter: 2009Q1

REPORT INFORMATION
  Report Type: 
  Country: None (occurrence: None)
  Receive Date: 20090203
  Receipt Date: 20090203
  Transmission Date: 20090719
  Serious: Yes (Other)
  Sender: FDA-Public Use
  Company Number: None

PATIENT
  Age: 59 Year
  Sex: Female

DRUGS (5)
  1. METFORMIN HCL [Suspect]
     Indication: TYPE 2 DIABETES MELLITUS
     Dosage: TAKE 1 TABLET TWO TIMES DAILY
     Dates: start: 20081225
  2. METOPROLOL SUCCINATE [Concomitant]
  3. FOLTX [Concomitant]
  4. VYTORIN [Concomitant]
  5. PROTONIX [Concomitant]

REACTIONS (2)
  - BLOOD GLUCOSE DECREASED [None]
  - PRODUCT QUALITY ISSUE [None]
